FAERS Safety Report 5499969-6 (Version None)
Quarter: 2007Q4

REPORT INFORMATION
  Report Type: 
  Country: None (occurrence: None)
  Receive Date: 20071026
  Receipt Date: 20071012
  Transmission Date: 20080405
  Serious: Yes (Life-Threatening, Hospitalization)
  Sender: FDA-Public Use
  Company Number: DE-GENENTECH-248689

PATIENT
  Sex: Female
  Weight: 169.8 kg

DRUGS (2)
  1. HERCEPTIN [Suspect]
     Indication: BREAST CANCER METASTATIC
     Dosage: 460 MG, UNK
     Dates: start: 20061121, end: 20070822
  2. XELODA [Suspect]
     Indication: BREAST CANCER METASTATIC
     Dates: start: 20061115, end: 20070815

REACTIONS (3)
  - CARDIAC FAILURE [None]
  - PLEURAL EFFUSION [None]
  - PULMONARY EMBOLISM [None]
